FAERS Safety Report 10932282 (Version 1)
Quarter: 2015Q1

REPORT INFORMATION
  Report Type: Spontaneous
  Country: US (occurrence: None)
  Receive Date: 20150319
  Receipt Date: 20150319
  Transmission Date: 20150721
  Serious: Yes (Disabling)
  Sender: FDA-Public Use
  Company Number: None

PATIENT
  Age: 45 Year
  Sex: Female
  Weight: 63.5 kg

DRUGS (22)
  1. TRAZODONE [Concomitant]
     Active Substance: TRAZODONE HYDROCHLORIDE
  2. FLONASE [Concomitant]
     Active Substance: FLUTICASONE PROPIONATE
  3. SYNTHROID [Concomitant]
     Active Substance: LEVOTHYROXINE SODIUM
  4. VITAMIN D [Concomitant]
     Active Substance: CHOLECALCIFEROL
  5. FOLIC ACID. [Concomitant]
     Active Substance: FOLIC ACID
  6. LISINOPRIL. [Concomitant]
     Active Substance: LISINOPRIL
  7. OXYGEN COMPRESOR [Concomitant]
  8. METOPROLOL [Concomitant]
     Active Substance: METOPROLOL
  9. PREMPRO [Concomitant]
     Active Substance: ESTROGENS, CONJUGATED\MEDROXYPROGESTERONE ACETATE
  10. ECONAZOLE [Concomitant]
     Active Substance: ECONAZOLE
  11. FENTANYL. [Concomitant]
     Active Substance: FENTANYL
  12. MIRALAX [Concomitant]
     Active Substance: POLYETHYLENE GLYCOL 3350
  13. PREVAGEN [Concomitant]
     Active Substance: DIETARY SUPPLEMENT
  14. AFRIN [Concomitant]
     Active Substance: OXYMETAZOLINE
  15. FACTOR VIII BLOOD PRODUCT [Suspect]
     Active Substance: ANTIHEMOPHILIC FACTOR HUMAN
     Route: 042
     Dates: start: 19990201
  16. METHOTREXATE [Concomitant]
     Active Substance: METHOTREXATE
  17. BETAMETHASONE [Concomitant]
     Active Substance: BETAMETHASONE
  18. PILOCARPINE [Concomitant]
     Active Substance: PILOCARPINE
  19. PLAQUNIEL [Concomitant]
  20. ADVAIR HFA [Concomitant]
     Active Substance: FLUTICASONE PROPIONATE\SALMETEROL XINAFOATE
  21. RESTASIS [Concomitant]
     Active Substance: CYCLOSPORINE
  22. MULTIVITAMIN [Concomitant]
     Active Substance: VITAMINS

REACTIONS (1)
  - Wrong drug administered [None]

NARRATIVE: CASE EVENT DATE: 19990201
